FAERS Safety Report 5931207-X (Version None)
Quarter: 2008Q4

REPORT INFORMATION
  Report Type: 
  Country: None (occurrence: None)
  Receive Date: 20081027
  Receipt Date: 20081022
  Transmission Date: 20090506
  Serious: Yes (Life-Threatening, Disabling)
  Sender: FDA-Public Use
  Company Number: PHHY2008DE19989

PATIENT
  Sex: Female
  Weight: 68 kg

DRUGS (2)
  1. LEPONEX [Suspect]
     Indication: SCHIZOPHRENIA
     Dosage: 300 MG/DAY
     Route: 048
     Dates: start: 19980101
  2. LEPONEX [Suspect]
     Dosage: 350 MG /DAY
     Route: 048
     Dates: start: 19980101

REACTIONS (1)
  - INTERSTITIAL LUNG DISEASE [None]
